FAERS Safety Report 7623857-X (Version None)
Quarter: 2011Q3

REPORT INFORMATION
  Report Type: 
  Country: None (occurrence: None)
  Receive Date: 20110720
  Receipt Date: 20110714
  Transmission Date: 20111222
  Serious: Yes (Hospitalization, Other)
  Sender: FDA-Public Use
  Company Number: US-PFIZER INC-2011082188

PATIENT
  Sex: Male

DRUGS (3)
  1. CHANTIX [Suspect]
     Indication: SMOKING CESSATION THERAPY
     Dosage: STARTER PACK; 1.0 MG CONTINUING PACKS
     Dates: start: 20080501, end: 20080801
  2. LUNESTA [Concomitant]
     Indication: INSOMNIA
     Dosage: UNK
     Dates: start: 20060101, end: 20100101
  3. CHANTIX [Suspect]
     Dosage: STARTER PACK
     Dates: start: 20090912, end: 20090915

REACTIONS (5)
  - SCHIZOAFFECTIVE DISORDER [None]
  - BIPOLAR DISORDER [None]
  - SUICIDAL BEHAVIOUR [None]
  - PSYCHOTIC DISORDER [None]
  - AGGRESSION [None]
